FAERS Safety Report 6088719-0 (Version None)
Quarter: 2009Q1

REPORT INFORMATION
  Report Type: 
  Country: None (occurrence: None)
  Receive Date: 20090224
  Receipt Date: 20090219
  Transmission Date: 20090719
  Serious: Yes (Hospitalization)
  Sender: FDA-Public Use
  Company Number: JP-ASTRAZENECA-2009AP00828

PATIENT
  Age: 65 Year
  Sex: Female
  Weight: 54 kg

DRUGS (4)
  1. CRESTOR [Suspect]
     Indication: DYSLIPIDAEMIA
     Route: 048
     Dates: start: 20080829, end: 20081201
  2. BONALON [Concomitant]
     Indication: OSTEOPOROSIS
     Route: 048
     Dates: start: 20070727
  3. FLUTIDE:DISKUS [Concomitant]
     Indication: ASTHMA
     Route: 055
     Dates: start: 20081120
  4. CLARITIN [Concomitant]
     Indication: RASH
     Route: 048

REACTIONS (1)
  - HEPATIC FUNCTION ABNORMAL [None]
